FAERS Safety Report 8291894-0 (Version None)
Quarter: 2012Q2

REPORT INFORMATION
  Report Type: 
  Country: None (occurrence: None)
  Receive Date: 20120417
  Receipt Date: 20110426
  Transmission Date: 20120825
  Serious: No
  Sender: FDA-Public Use
  Company Number: US-ASTRAZENECA-2011SE24668

PATIENT
  Age: 52 Year
  Sex: Male

DRUGS (1)
  1. NEXIUM [Suspect]
     Indication: DYSPEPSIA
     Route: 048
     Dates: start: 20110411, end: 20110419

REACTIONS (2)
  - DYSPEPSIA [None]
  - DRUG DOSE OMISSION [None]
